FAERS Safety Report 12713673 (Version 2)
Quarter: 2016Q3

REPORT INFORMATION
  Report Type: Spontaneous
  Country: US (occurrence: US)
  Receive Date: 20160904
  Receipt Date: 20160908
  Transmission Date: 20161109
  Serious: Yes (Other)
  Sender: FDA-Public Use
  Company Number: US-AUROBINDO-AUR-APL-2016-10913

PATIENT
  Age: 55 Year
  Sex: Male

DRUGS (2)
  1. MIDAZOLAM [Concomitant]
     Active Substance: MIDAZOLAM\MIDAZOLAM HYDROCHLORIDE
     Indication: ROTATOR CUFF REPAIR
     Dosage: 2 MG, UNK
     Route: 042
  2. ROPIVACAINE HYDROCHLORIDE 0.5% [Suspect]
     Active Substance: ROPIVACAINE HYDROCHLORIDE
     Indication: ROTATOR CUFF REPAIR
     Dosage: 25 ML, UNK
     Route: 065

REACTIONS (9)
  - Diaphragmatic paralysis [Recovered/Resolved]
  - Vocal cord disorder [Recovered/Resolved]
  - Dyspnoea [Recovered/Resolved]
  - Oropharyngeal pain [Recovered/Resolved]
  - Vocal cord atrophy [Recovered/Resolved]
  - Oropharyngeal discomfort [Recovered/Resolved]
  - Dysphagia [Recovered/Resolved]
  - Hypoaesthesia [Recovered/Resolved]
  - Tongue movement disturbance [Recovered/Resolved]
